FAERS Safety Report 5423286-3 (Version None)
Quarter: 2007Q3

REPORT INFORMATION
  Report Type: 
  Country: None (occurrence: None)
  Receive Date: 20070823
  Receipt Date: 20070820
  Transmission Date: 20080115
  Serious: Yes (Hospitalization)
  Sender: FDA-Public Use
  Company Number: PHRM2007FR02055

PATIENT
  Age: 37 Year
  Sex: Male

DRUGS (2)
  1. ACETAMINOPHEN [Suspect]
     Indication: BACK PAIN
     Dosage: 1 DF, BID
     Route: 048
     Dates: start: 20060824, end: 20060824
  2. VOLTAREN [Suspect]
     Indication: BACK PAIN
     Dosage: 1 DF, QD
     Route: 048
     Dates: start: 20060824, end: 20060824

REACTIONS (9)
  - ABDOMINAL PAIN [None]
  - ANAPHYLACTOID REACTION [None]
  - DIARRHOEA [None]
  - DYSPNOEA [None]
  - FEELING HOT [None]
  - HYPERHIDROSIS [None]
  - HYPOTENSION [None]
  - IDIOSYNCRATIC DRUG REACTION [None]
  - PRURITUS [None]
